FAERS Safety Report 23393445 (Version 2)
Quarter: 2024Q3

REPORT INFORMATION
  Report Type: Spontaneous
  Country: CN (occurrence: CN)
  Receive Date: 20240111
  Receipt Date: 20240724
  Transmission Date: 20241017
  Serious: Yes (Other)
  Sender: PFIZER
  Company Number: CN-PFIZER INC-PV202400002568

PATIENT
  Age: 93 Year
  Sex: Male

DRUGS (1)
  1. TYGACIL [Suspect]
     Active Substance: TIGECYCLINE
     Indication: Symptomatic treatment
     Dosage: 50 MG, 2X/DAY
     Route: 041
     Dates: start: 20231012, end: 20231024

REACTIONS (1)
  - Liver injury [Not Recovered/Not Resolved]

NARRATIVE: CASE EVENT DATE: 20231020
